FAERS Safety Report 17660783 (Version 1)
Quarter: 2020Q2

REPORT INFORMATION
  Report Type: Report from Study
  Country: FR (occurrence: FR)
  Receive Date: 20200413
  Receipt Date: 20200413
  Transmission Date: 20200713
  Serious: Yes (Death)
  Sender: FDA-Public Use
  Company Number: FR-EMD SERONO-9156810

PATIENT
  Age: 78 Year
  Sex: Male
  Weight: 73 kg

DRUGS (7)
  1. INTERFERON BETA-1A [Suspect]
     Active Substance: INTERFERON BETA-1A
     Indication: CORONAVIRUS INFECTION
     Route: 058
     Dates: start: 20200325, end: 20200330
  2. SALBUTAMOL [Concomitant]
     Active Substance: ALBUTEROL
     Indication: PRODUCT USED FOR UNKNOWN INDICATION
     Dosage: INHALATION
     Dates: start: 20200404, end: 20200406
  3. CEFEPIME [Concomitant]
     Active Substance: CEFEPIME HYDROCHLORIDE
     Indication: LUNG DISORDER
     Route: 042
     Dates: start: 20200405, end: 20200406
  4. FUROSEMIDE. [Concomitant]
     Active Substance: FUROSEMIDE
     Indication: PRODUCT USED FOR UNKNOWN INDICATION
     Route: 042
     Dates: start: 20200401, end: 20200402
  5. BISOPROLOL HEMIFUMARATE [Concomitant]
     Active Substance: BISOPROLOL FUMARATE
     Indication: PRODUCT USED FOR UNKNOWN INDICATION
     Dates: start: 20200324, end: 20200406
  6. RITONAVIR. [Suspect]
     Active Substance: RITONAVIR
     Indication: CORONAVIRUS INFECTION
     Dosage: 200 (UNSPECIFIED UNITS)
     Dates: start: 20200325, end: 20200406
  7. LOPINAVIR [Suspect]
     Active Substance: LOPINAVIR
     Indication: CORONAVIRUS INFECTION
     Dates: start: 20200325, end: 20200406

REACTIONS (1)
  - Death [Fatal]

NARRATIVE: CASE EVENT DATE: 20200406
